FAERS Safety Report 21650955 (Version 3)
Quarter: 2023Q1

REPORT INFORMATION
  Report Type: Spontaneous
  Country: JP (occurrence: JP)
  Receive Date: 20221128
  Receipt Date: 20230317
  Transmission Date: 20230418
  Serious: Yes (Life-Threatening)
  Sender: FDA-Public Use
  Company Number: JP-002147023-NVSC2022JP256793

PATIENT
  Age: 62 Year
  Sex: Male
  Weight: 59.2 kg

DRUGS (3)
  1. LUTATHERA [Suspect]
     Active Substance: LUTETIUM OXODOTREOTIDE LU-177
     Indication: Neuroendocrine tumour of the rectum
     Dosage: 7.4 GBQ
     Route: 042
     Dates: start: 20220825, end: 20220825
  2. ARGININE\LYSINE [Suspect]
     Active Substance: ARGININE\LYSINE
     Indication: Product used for unknown indication
     Dosage: UNK (INJECTION)
     Route: 042
  3. GRANISETRON HYDROCHLORIDE [Concomitant]
     Active Substance: GRANISETRON HYDROCHLORIDE
     Indication: Prophylaxis of nausea and vomiting
     Dosage: UNK
     Route: 065

REACTIONS (2)
  - Tumour haemorrhage [Recovered/Resolved]
  - Intra-abdominal haemorrhage [Recovering/Resolving]

NARRATIVE: CASE EVENT DATE: 20221005
